FAERS Safety Report 21668045 (Version 6)
Quarter: 2023Q2

REPORT INFORMATION
  Report Type: Spontaneous
  Country: CA (occurrence: CA)
  Receive Date: 20221201
  Receipt Date: 20230522
  Transmission Date: 20230721
  Serious: Yes (Hospitalization, Other)
  Sender: FDA-Public Use
  Company Number: CA-PFIZER INC-202201245919

PATIENT
  Age: 37 Year
  Sex: Female

DRUGS (2)
  1. ABRILADA [Suspect]
     Active Substance: ADALIMUMAB-AFZB
     Indication: Hidradenitis
     Dosage: 1 DF, 160MG WEEK 0, 80MG WEEK 2 THEN 40MG EVERY WEEK STARING WEEK 4
     Route: 058
     Dates: start: 20220706, end: 202210
  2. METFORMIN [Concomitant]
     Active Substance: METFORMIN HYDROCHLORIDE
     Indication: Polycystic ovaries
     Dosage: 1 DF

REACTIONS (10)
  - Sepsis [Recovering/Resolving]
  - Skin lesion [Recovering/Resolving]
  - Discharge [Recovering/Resolving]
  - Illness [Unknown]
  - Pyrexia [Unknown]
  - Cough [Unknown]
  - Headache [Unknown]
  - Dyspnoea [Unknown]
  - Decreased appetite [Unknown]
  - Anosmia [Unknown]

NARRATIVE: CASE EVENT DATE: 20220101
